FAERS Safety Report 13992951 (Version 1)
Quarter: 2017Q3

REPORT INFORMATION
  Report Type: Report from Study
  Country: US (occurrence: US)
  Receive Date: 20170920
  Receipt Date: 20170920
  Transmission Date: 20171128
  Serious: Yes (Hospitalization)
  Sender: FDA-Public Use
  Company Number: US-JNJFOC-20151022994

PATIENT
  Age: 63 Year
  Sex: Male

DRUGS (30)
  1. FLONASE [Concomitant]
     Active Substance: FLUTICASONE PROPIONATE
  2. RIBAVIRIN. [Concomitant]
     Active Substance: RIBAVIRIN
  3. SIMVASTATIN. [Concomitant]
     Active Substance: SIMVASTATIN
  4. DIPHENHYDRAMINE. [Concomitant]
     Active Substance: DIPHENHYDRAMINE
  5. METHADONE [Concomitant]
     Active Substance: METHADONE HYDROCHLORIDE
  6. LISINOPRIL. [Concomitant]
     Active Substance: LISINOPRIL
  7. LISINOPRIL. [Concomitant]
     Active Substance: LISINOPRIL
  8. OXYCODONE [Concomitant]
     Active Substance: OXYCODONE
  9. IMBRUVICA [Suspect]
     Active Substance: IBRUTINIB
     Indication: NEOPLASM MALIGNANT
     Route: 048
     Dates: start: 20150729
  10. FERROUS SULFATE. [Concomitant]
     Active Substance: FERROUS SULFATE
  11. EUCERIN [Concomitant]
     Active Substance: ENSULIZOLE\EUCERIN\OCTINOXATE\OCTISALATE\TITANIUM DIOXIDE\ZINC OXIDE
  12. OMEPRAZOLE. [Concomitant]
     Active Substance: OMEPRAZOLE
  13. IMBRUVICA [Suspect]
     Active Substance: IBRUTINIB
     Indication: HAEMATOLOGICAL MALIGNANCY
     Route: 048
     Dates: start: 20161030
  14. PROVENTIL [Concomitant]
     Active Substance: ALBUTEROL
  15. NICOTINE. [Concomitant]
     Active Substance: NICOTINE
  16. MIRALAX [Concomitant]
     Active Substance: POLYETHYLENE GLYCOL 3350
  17. SYMBICORT [Concomitant]
     Active Substance: BUDESONIDE\FORMOTEROL FUMARATE DIHYDRATE
  18. IMBRUVICA [Suspect]
     Active Substance: IBRUTINIB
     Indication: NEOPLASM MALIGNANT
     Route: 048
     Dates: start: 20161030
  19. IMBRUVICA [Suspect]
     Active Substance: IBRUTINIB
     Indication: WALDENSTROM^S MACROGLOBULINAEMIA
     Route: 048
     Dates: start: 20161030
  20. ASPIRIN. [Concomitant]
     Active Substance: ASPIRIN
  21. GABAPENTIN. [Concomitant]
     Active Substance: GABAPENTIN
  22. IRON [Concomitant]
     Active Substance: IRON
  23. IMBRUVICA [Suspect]
     Active Substance: IBRUTINIB
     Indication: HAEMATOLOGICAL MALIGNANCY
     Route: 048
     Dates: start: 20150729
  24. MICROZIDE [Concomitant]
     Active Substance: HYDROCHLOROTHIAZIDE
  25. MIRTAZAPINE. [Concomitant]
     Active Substance: MIRTAZAPINE
  26. SIMETHICONE (DIMETHICONE) [Concomitant]
     Active Substance: DIMETHICONE
  27. IMBRUVICA [Suspect]
     Active Substance: IBRUTINIB
     Indication: WALDENSTROM^S MACROGLOBULINAEMIA
     Route: 048
     Dates: start: 20150729
  28. COLACE [Concomitant]
     Active Substance: DOCUSATE SODIUM
  29. ANUSOL HC [Concomitant]
     Active Substance: HYDROCORTISONE
  30. IMDUR [Concomitant]
     Active Substance: ISOSORBIDE MONONITRATE

REACTIONS (5)
  - Diarrhoea [Unknown]
  - Chronic obstructive pulmonary disease [Unknown]
  - Pneumonia [Unknown]
  - Dyspnoea [Not Recovered/Not Resolved]
  - Pulmonary congestion [Not Recovered/Not Resolved]

NARRATIVE: CASE EVENT DATE: 2015
